FAERS Safety Report 10187158 (Version 2)
Quarter: 2014Q2

REPORT INFORMATION
  Report Type: Spontaneous
  Country: US (occurrence: US)
  Receive Date: 20140522
  Receipt Date: 20140611
  Transmission Date: 20141212
  Serious: Yes (Hospitalization)
  Sender: FDA-Public Use
  Company Number: US-BAYER-2014-076098

PATIENT
  Age: 31 Year
  Sex: Female

DRUGS (9)
  1. YAZ [Suspect]
  2. SOMA [Concomitant]
  3. CELEBREX [Concomitant]
  4. PEPCID [Concomitant]
  5. XANAX [Concomitant]
  6. SINGULAIR [Concomitant]
  7. PERCOCET [Concomitant]
  8. XOPENEX [Concomitant]
  9. PROCARDIA XL [Concomitant]

REACTIONS (1)
  - Deep vein thrombosis [Recovered/Resolved]
